FAERS Safety Report 4390035-X (Version None)
Quarter: 2004Q2

REPORT INFORMATION
  Report Type: 
  Country: None (occurrence: None)
  Receive Date: 20040630
  Receipt Date: 20040617
  Transmission Date: 20050107
  Serious: Yes (Hospitalization)
  Sender: FDA-Public Use
  Company Number: EM2004-0108

PATIENT
  Age: 43 Year
  Sex: Male

DRUGS (7)
  1. MACROLIN [Suspect]
     Indication: HIV INFECTION
     Dosage: 4.5 MIU, BID, SUBCUTAN
     Route: 058
     Dates: start: 20031013, end: 20031017
  2. MACROLIN [Suspect]
     Indication: HIV INFECTION
     Dosage: 4.5 MIU, BID, SUBCUTAN
     Route: 058
     Dates: start: 20030408
  3. MACROLIN [Suspect]
     Indication: HIV INFECTION
     Dosage: 4.5 MIU, BID, SUBCUTAN
     Route: 058
     Dates: start: 20030606
  4. MACROLIN [Suspect]
     Indication: HIV INFECTION
     Dosage: 4.5 MIU, BID, SUBCUTAN
     Route: 058
     Dates: start: 20030811
  5. BACTRIM [Concomitant]
  6. COMBIVIR [Concomitant]
  7. VIRAMUNE [Concomitant]

REACTIONS (3)
  - CATARACT OPERATION [None]
  - OPTIC NERVE DISORDER [None]
  - UVEITIS [None]
